FAERS Safety Report 12187289 (Version 6)
Quarter: 2017Q3

REPORT INFORMATION
  Report Type: Report from Study
  Country: US (occurrence: US)
  Receive Date: 20160317
  Receipt Date: 20170908
  Transmission Date: 20171127
  Serious: Yes (Hospitalization)
  Sender: FDA-Public Use
  Company Number: PHHY2016US035242

PATIENT
  Age: 33 Year
  Sex: Female
  Weight: 104.3 kg

DRUGS (4)
  1. SOLU-MEDROL [Concomitant]
     Active Substance: METHYLPREDNISOLONE SODIUM SUCCINATE
     Dosage: 1 G, UNK
     Route: 041
     Dates: start: 20160302, end: 20160305
  2. SOLU-MEDROL [Concomitant]
     Active Substance: METHYLPREDNISOLONE SODIUM SUCCINATE
     Indication: MULTIPLE SCLEROSIS RELAPSE
     Dosage: UNK
     Route: 041
     Dates: start: 20160129, end: 20160203
  3. HYDROCORTISONE. [Concomitant]
     Active Substance: HYDROCORTISONE
     Indication: CORTISOL DEFICIENCY
     Dosage: UNK
     Route: 065
     Dates: start: 20160302, end: 20160316
  4. GILENYA [Suspect]
     Active Substance: FINGOLIMOD HYDROCHLORIDE
     Indication: MULTIPLE SCLEROSIS
     Dosage: QD
     Route: 048
     Dates: start: 20160304

REACTIONS (4)
  - Dyspnoea [Unknown]
  - Chest discomfort [Unknown]
  - Bradycardia [Recovering/Resolving]
  - White blood cell count decreased [Unknown]

NARRATIVE: CASE EVENT DATE: 20160304
